FAERS Safety Report 6521327-3 (Version None)
Quarter: 2009Q4

REPORT INFORMATION
  Report Type: 
  Country: None (occurrence: None)
  Receive Date: 20091230
  Receipt Date: 20091221
  Transmission Date: 20100525
  Serious: No
  Sender: FDA-Public Use
  Company Number: JP-JNJFOC-20091205484

PATIENT
  Sex: Female

DRUGS (6)
  1. CRAVIT [Suspect]
     Indication: APPENDICITIS
     Route: 048
  2. OMEPRAZOLE [Concomitant]
     Indication: REFLUX OESOPHAGITIS
     Route: 048
  3. GASMOTIN [Concomitant]
     Indication: REFLUX OESOPHAGITIS
     Route: 048
  4. FOIPAN [Concomitant]
     Indication: REFLUX OESOPHAGITIS
     Route: 048
  5. VITAMEDIN [Concomitant]
     Indication: REFLUX OESOPHAGITIS
     Route: 048
  6. LAC B [Concomitant]
     Indication: REFLUX OESOPHAGITIS
     Route: 048

REACTIONS (3)
  - DIZZINESS [None]
  - ELECTROCARDIOGRAM ST SEGMENT ELEVATION [None]
  - PALPITATIONS [None]
